FAERS Safety Report 5562782-5 (Version None)
Quarter: 2007Q4

REPORT INFORMATION
  Report Type: 
  Country: None (occurrence: None)
  Receive Date: 20071217
  Receipt Date: 20071210
  Transmission Date: 20080405
  Serious: Yes (Death)
  Sender: FDA-Public Use
  Company Number: AR-NOVOPROD-270150

PATIENT

DRUGS (3)
  1. NOVOSEVEN [Suspect]
     Indication: SURGERY
     Dosage: 16.8 MG
     Route: 042
     Dates: start: 20071024
  2. NOVOSEVEN [Suspect]
     Dosage: 16.8 MG
     Route: 042
     Dates: start: 20071026
  3. NOVOSEVEN [Suspect]
     Dosage: 16.8 MG
     Route: 042
     Dates: start: 20071027

REACTIONS (1)
  - DEATH [None]
